FAERS Safety Report 9215080 (Version 2)
Quarter: 2013Q2

REPORT INFORMATION
  Report Type: Spontaneous
  Country: US (occurrence: US)
  Receive Date: 20130405
  Receipt Date: 20130425
  Transmission Date: 20140414
  Serious: Yes (Hospitalization, Other)
  Sender: FDA-Public Use
  Company Number: US-BAYER-2013-041431

PATIENT
  Age: 30 Year
  Sex: Female

DRUGS (1)
  1. YASMIN [Suspect]

REACTIONS (6)
  - Deep vein thrombosis [None]
  - Injury [None]
  - Pain [None]
  - Emotional distress [None]
  - Pelvic venous thrombosis [None]
  - Deep vein thrombosis [Recovered/Resolved]
